FAERS Safety Report 21766505 (Version 23)
Quarter: 2025Q3

REPORT INFORMATION
  Report Type: Spontaneous
  Country: US (occurrence: US)
  Receive Date: 20221222
  Receipt Date: 20250912
  Transmission Date: 20251021
  Serious: No
  Sender: PFIZER
  Company Number: US-PFIZER INC-PV202200129350

PATIENT
  Age: 65 Year
  Sex: Female
  Weight: 71.202 kg

DRUGS (8)
  1. BOSULIF [Suspect]
     Active Substance: BOSUTINIB MONOHYDRATE
     Indication: Philadelphia positive chronic myeloid leukaemia
     Dosage: 100 MG, DAILY (TAKE 100 MG, DAILY)
     Route: 048
     Dates: start: 20210103, end: 20220106
  2. BOSULIF [Suspect]
     Active Substance: BOSUTINIB MONOHYDRATE
     Dosage: 400 MG, 1X/DAY (TAKE 400 MG 1 (ONE) TIME A DAY)
     Route: 048
     Dates: start: 2022
  3. BOSULIF [Suspect]
     Active Substance: BOSUTINIB MONOHYDRATE
     Dates: start: 20220202
  4. BOSULIF [Suspect]
     Active Substance: BOSUTINIB MONOHYDRATE
     Dosage: 200 MG, 1X/DAY (TAKE 2 TABLETS (200 MG TOTAL) 1 (ONE) TIME OF A DAY)
     Route: 048
  5. BOSULIF [Suspect]
     Active Substance: BOSUTINIB MONOHYDRATE
     Dosage: 100 MG, 1X/DAY (TAKE 1 TABLET (100 MG TOTAL) ONCE DAILY, SWALLOW WHOLE, DO NOT BREAK TABLET, W/FOOD)
     Route: 048
     Dates: start: 202301
  6. BOSULIF [Suspect]
     Active Substance: BOSUTINIB MONOHYDRATE
     Dosage: 300 MG, 1X/DAY (TAKE 3 TABLET (300 MG TOTAL) ONCE DAILY, SWALLOW WHOLE, DO NOT BREAK TABLET, W/FOOD)
     Route: 048
  7. BOSULIF [Suspect]
     Active Substance: BOSUTINIB MONOHYDRATE
     Dosage: 100 MG ONCE DAILY (1 TABLET ORALLY EVERY DAY)
     Route: 048
  8. FAMOTIDINE [Concomitant]
     Active Substance: FAMOTIDINE
     Dates: start: 202211

REACTIONS (14)
  - COVID-19 [Unknown]
  - Dysphonia [Recovered/Resolved]
  - Eye disorder [Unknown]
  - Furuncle [Unknown]
  - Illness [Recovered/Resolved]
  - Erythema [Not Recovered/Not Resolved]
  - Skin lesion [Unknown]
  - Rash pruritic [Not Recovered/Not Resolved]
  - Fatigue [Recovered/Resolved]
  - Pain [Unknown]
  - Diarrhoea [Recovered/Resolved]
  - Respiratory tract congestion [Unknown]
  - Nasopharyngitis [Unknown]
  - Chest pain [Unknown]

NARRATIVE: CASE EVENT DATE: 20220101
